FAERS Safety Report 23448700 (Version 1)
Quarter: 2024Q1

REPORT INFORMATION
  Report Type: Spontaneous
  Country: FR (occurrence: FR)
  Receive Date: 20240127
  Receipt Date: 20240127
  Transmission Date: 20240410
  Serious: Yes (Hospitalization, Other)
  Sender: FDA-Public Use
  Company Number: FR-AFSSAPS-PP2024000034

PATIENT
  Age: 81 Year
  Sex: Male
  Weight: 72.5 kg

DRUGS (3)
  1. LEVETIRACETAM [Suspect]
     Active Substance: LEVETIRACETAM
     Indication: Tonic clonic movements
     Dosage: 750 MILLIGRAM, TWO TIMES A DAY
     Route: 048
     Dates: start: 20231108, end: 20231213
  2. CEFOTAXIME [Suspect]
     Active Substance: CEFOTAXIME SODIUM
     Indication: Abscess drainage
     Dosage: 1 GRAM, 3 TIMES A DAY
     Route: 042
     Dates: start: 20231204, end: 20231211
  3. METRONIDAZOLE [Suspect]
     Active Substance: METRONIDAZOLE
     Indication: Abscess drainage
     Dosage: 500 MILLIGRAM, 3 TIMES A DAY
     Route: 042
     Dates: start: 20231207, end: 20231213

REACTIONS (1)
  - Encephalopathy [Recovering/Resolving]

NARRATIVE: CASE EVENT DATE: 20231211
